FAERS Safety Report 7029227-X (Version None)
Quarter: 2010Q4

REPORT INFORMATION
  Report Type: 
  Country: None (occurrence: None)
  Receive Date: 20101005
  Receipt Date: 20100928
  Transmission Date: 20110411
  Serious: Yes (Life-Threatening)
  Sender: FDA-Public Use
  Company Number: JP-SANOFI-AVENTIS-2010SA052796

PATIENT
  Age: 82 Year
  Sex: Male
  Weight: 55 kg

DRUGS (9)
  1. PLAVIX [Suspect]
     Route: 048
     Dates: start: 20100331, end: 20100822
  2. ALPHA-ADRENORECEPTOR ANTAGONISTS [Suspect]
     Dates: start: 20100331, end: 20100822
  3. GASMOTIN [Suspect]
     Indication: CONSTIPATION
     Route: 048
     Dates: start: 20100331, end: 20100822
  4. MICARDIS [Concomitant]
     Indication: HYPERTENSION
     Route: 048
     Dates: start: 20100331
  5. LANSOPRAZOLE [Concomitant]
     Indication: REFLUX OESOPHAGITIS
     Route: 048
     Dates: start: 20100331, end: 20100406
  6. LANSOPRAZOLE [Concomitant]
     Route: 048
     Dates: start: 20100731
  7. AMLODIPINE BESYLATE [Concomitant]
     Indication: HYPERTENSION
     Route: 048
     Dates: start: 20050101, end: 20100330
  8. AMLODIPINE BESYLATE [Concomitant]
     Route: 048
     Dates: start: 20100428, end: 20100806
  9. FAMOTIDINE [Concomitant]
     Indication: REFLUX OESOPHAGITIS
     Route: 048
     Dates: start: 20100407, end: 20100730

REACTIONS (2)
  - PANCYTOPENIA [None]
  - WHITE BLOOD CELL COUNT DECREASED [None]
